FAERS Safety Report 23693512 (Version 9)
Quarter: 2025Q4

REPORT INFORMATION
  Report Type: Spontaneous
  Country: US (occurrence: US)
  Receive Date: 20240401
  Receipt Date: 20251008
  Transmission Date: 20260118
  Serious: Yes (Hospitalization, Other)
  Sender: SANOFI AVENTIS
  Company Number: US-SA-SAC20240401000034

PATIENT
  Age: 51 Year
  Sex: Female
  Weight: 87.27 kg

DRUGS (83)
  1. DUPIXENT [Suspect]
     Active Substance: DUPILUMAB
     Indication: Asthma
     Dosage: 300 MG, QOW
     Route: 058
  2. CLARITHROMYCIN [Concomitant]
     Active Substance: CLARITHROMYCIN
  3. ZENPEP [Concomitant]
     Active Substance: PANCRELIPASE AMYLASE\PANCRELIPASE LIPASE\PANCRELIPASE PROTEASE
     Dosage: 10-32-42K CAPSULE DR
  4. WELLBUTRIN XL [Concomitant]
     Active Substance: BUPROPION HYDROCHLORIDE
     Dosage: 1 DF, QD
  5. TYLENOL [Concomitant]
     Active Substance: ACETAMINOPHEN
  6. POTASSIUM GLUCONATE [Concomitant]
     Active Substance: POTASSIUM GLUCONATE
  7. OMEGA-3 FATTY ACIDS [Concomitant]
     Active Substance: OMEGA-3 FATTY ACIDS
  8. LEVOTHYROXINE SODIUM [Concomitant]
     Active Substance: LEVOTHYROXINE SODIUM
  9. IRBESARTAN [Concomitant]
     Active Substance: IRBESARTAN
  10. MINERALS\VITAMINS [Concomitant]
     Active Substance: MINERALS\VITAMINS
  11. LACTOBACILLUS ACIDOPHILUS;PECTIN [Concomitant]
  12. LEVOSALBUTAMOL TARTRATE [Concomitant]
  13. NAMENDA [Concomitant]
     Active Substance: MEMANTINE HYDROCHLORIDE
  14. CLINDAMYCIN [Concomitant]
     Active Substance: CLINDAMYCIN
  15. METFORMIN HYDROCHLORIDE [Concomitant]
     Active Substance: METFORMIN HYDROCHLORIDE
  16. SYNTHROID [Concomitant]
     Active Substance: LEVOTHYROXINE SODIUM
  17. REMERON [Concomitant]
     Active Substance: MIRTAZAPINE
  18. DOXAZOSIN MESYLATE [Concomitant]
     Active Substance: DOXAZOSIN MESYLATE
  19. VITAMIN D3 [Concomitant]
     Active Substance: CHOLECALCIFEROL
  20. XOPENEX [Concomitant]
     Active Substance: LEVALBUTEROL HYDROCHLORIDE
     Dosage: 1.25 MG/ 0.5 ML
  21. SINGULAIR [Concomitant]
     Active Substance: MONTELUKAST SODIUM
  22. TRIGLIDE [Concomitant]
     Active Substance: FENOFIBRATE
  23. NABUMETONE [Concomitant]
     Active Substance: NABUMETONE
  24. BESIVANCE [Concomitant]
     Active Substance: BESIFLOXACIN
  25. COZAAR [Concomitant]
     Active Substance: LOSARTAN POTASSIUM
  26. FISH OIL\OMEGA-3 FATTY ACIDS [Concomitant]
     Active Substance: FISH OIL\OMEGA-3 FATTY ACIDS
  27. LEVEMIR [Concomitant]
     Active Substance: INSULIN DETEMIR
  28. LAMICTAL [Concomitant]
     Active Substance: LAMOTRIGINE
  29. ACETAMINOPHEN\CHLORZOXAZONE [Concomitant]
     Active Substance: ACETAMINOPHEN\CHLORZOXAZONE
  30. MACROBID [Concomitant]
     Active Substance: NITROFURANTOIN\NITROFURANTOIN MONOHYDRATE
  31. SEROQUEL [Concomitant]
     Active Substance: QUETIAPINE FUMARATE
  32. NOVOLOG [Concomitant]
     Active Substance: INSULIN ASPART
  33. GABAPENTIN [Concomitant]
     Active Substance: GABAPENTIN
  34. POTASSIUM CHLORIDE [Concomitant]
     Active Substance: POTASSIUM CHLORIDE
  35. SYMBICORT [Concomitant]
     Active Substance: BUDESONIDE\FORMOTEROL FUMARATE DIHYDRATE
  36. SPIRIVA [Concomitant]
     Active Substance: TIOTROPIUM BROMIDE MONOHYDRATE
  37. PEPPERMINT OIL [Concomitant]
     Active Substance: PEPPERMINT OIL
  38. FENOFIBRATE [Concomitant]
     Active Substance: FENOFIBRATE
  39. ZYRTEC [Concomitant]
     Active Substance: CETIRIZINE HYDROCHLORIDE
  40. NAC [Concomitant]
  41. SEROQUEL XR [Concomitant]
     Active Substance: QUETIAPINE FUMARATE
  42. BENADRYL [Concomitant]
     Active Substance: DIPHENHYDRAMINE HYDROCHLORIDE
  43. NEXIUM [Concomitant]
     Active Substance: ESOMEPRAZOLE MAGNESIUM
  44. LEVALBUTEROL TARTRATE [Concomitant]
     Active Substance: LEVALBUTEROL TARTRATE
     Route: 055
  45. VITAMINS [Concomitant]
     Active Substance: VITAMINS
  46. XOPENEX [Concomitant]
     Active Substance: LEVALBUTEROL HYDROCHLORIDE
  47. DEPLIN [Concomitant]
     Active Substance: LEVOMEFOLATE CALCIUM
  48. DYMISTA [Concomitant]
     Active Substance: AZELASTINE HYDROCHLORIDE\FLUTICASONE PROPIONATE
  49. Algal oil DHA [Concomitant]
  50. NEURONTIN [Concomitant]
     Active Substance: GABAPENTIN
  51. VITAMIN D3 [Concomitant]
     Active Substance: CHOLECALCIFEROL
     Dosage: UNK
  52. CLINDAMYCIN [Concomitant]
     Active Substance: CLINDAMYCIN
     Dosage: UNK
  53. REMERON [Concomitant]
     Active Substance: MIRTAZAPINE
     Dosage: UNK
  54. SPIRIVA [Concomitant]
     Active Substance: TIOTROPIUM BROMIDE MONOHYDRATE
     Dosage: UNK
  55. LAMICTAL ODT [Concomitant]
     Active Substance: LAMOTRIGINE
     Dosage: UNK
  56. POTASSIUM CHLORIDE [Concomitant]
     Active Substance: POTASSIUM CHLORIDE
     Dosage: UNK
  57. NOVOLOG [Concomitant]
     Active Substance: INSULIN ASPART
     Dosage: UNK
  58. LEVOTHYROXINE SODIUM [Concomitant]
     Active Substance: LEVOTHYROXINE SODIUM
     Dosage: UNK
  59. Acidophilus/pectin [Concomitant]
  60. KLONOPIN [Concomitant]
     Active Substance: CLONAZEPAM
  61. PEPCID [Concomitant]
     Active Substance: FAMOTIDINE
  62. FLONASE ALLERGY RELIEF [Concomitant]
     Active Substance: FLUTICASONE PROPIONATE
  63. PROTONIX [Concomitant]
     Active Substance: PANTOPRAZOLE SODIUM
  64. WELLBUTRIN XL [Concomitant]
     Active Substance: BUPROPION HYDROCHLORIDE
  65. EFFEXOR [Concomitant]
     Active Substance: VENLAFAXINE HYDROCHLORIDE
  66. LEVALBUTEROL [Concomitant]
     Active Substance: LEVALBUTEROL
  67. VITAMINS [Concomitant]
     Active Substance: VITAMINS
  68. BREZTRI [Concomitant]
     Active Substance: BUDESONIDE\FORMOTEROL\GLYCOPYRROLATE
  69. ONDANSETRON HYDROCHLORIDE [Concomitant]
     Active Substance: ONDANSETRON HYDROCHLORIDE
  70. NABUMETONE [Concomitant]
     Active Substance: NABUMETONE
  71. TYLENOL [Concomitant]
     Active Substance: ACETAMINOPHEN
  72. OLOPATADINE [Concomitant]
     Active Substance: OLOPATADINE
  73. PRAVASTATIN SODIUM [Concomitant]
     Active Substance: PRAVASTATIN SODIUM
  74. FLUOXETINE HYDROCHLORIDE [Concomitant]
     Active Substance: FLUOXETINE HYDROCHLORIDE
  75. SINGULAIR [Concomitant]
     Active Substance: MONTELUKAST SODIUM
  76. LANTUS [Concomitant]
     Active Substance: INSULIN GLARGINE
  77. MELATONIN [Concomitant]
     Active Substance: MELATONIN
  78. ALBUTEROL SULFATE\IPRATROPIUM BROMIDE [Concomitant]
     Active Substance: ALBUTEROL SULFATE\IPRATROPIUM BROMIDE
  79. MIRALAX [Concomitant]
     Active Substance: POLYETHYLENE GLYCOL 3350
  80. IRON [Concomitant]
     Active Substance: IRON
  81. XYZAL [Concomitant]
     Active Substance: LEVOCETIRIZINE DIHYDROCHLORIDE
  82. DOCUSATE SODIUM [Concomitant]
     Active Substance: DOCUSATE SODIUM
  83. AMBIEN [Concomitant]
     Active Substance: ZOLPIDEM TARTRATE

REACTIONS (11)
  - Diverticulitis [Unknown]
  - Atypical pneumonia [Not Recovered/Not Resolved]
  - Atypical pneumonia [Recovering/Resolving]
  - Hospitalisation [Unknown]
  - Fatigue [Recovering/Resolving]
  - COVID-19 [Unknown]
  - Bronchitis [Unknown]
  - Skin ulcer [Unknown]
  - Foot fracture [Unknown]
  - Pyrexia [Not Recovered/Not Resolved]
  - Sinusitis [Unknown]

NARRATIVE: CASE EVENT DATE: 20240101
